FAERS Safety Report 14333930 (Version 1)
Quarter: 2017Q4

REPORT INFORMATION
  Report Type: Spontaneous
  Country: FR (occurrence: FR)
  Receive Date: 20171228
  Receipt Date: 20171228
  Transmission Date: 20180321
  Serious: Yes (Hospitalization)
  Sender: FDA-Public Use
  Company Number: FR-PFIZER INC-2017550816

PATIENT
  Age: 73 Year
  Sex: Female

DRUGS (2)
  1. ARACYTINE [Suspect]
     Active Substance: CYTARABINE
     Dosage: 300 MG, UNK
     Route: 042
     Dates: start: 20170811, end: 20170817
  2. MYLOTARG [Suspect]
     Active Substance: GEMTUZUMAB OZOGAMICIN
     Dosage: UNK
     Route: 042
     Dates: start: 20170811, end: 20170814

REACTIONS (2)
  - Acute pulmonary oedema [Recovering/Resolving]
  - Left ventricular dysfunction [Recovering/Resolving]

NARRATIVE: CASE EVENT DATE: 20170901
